FAERS Safety Report 9319501 (Version 1)
Quarter: 2013Q2

REPORT INFORMATION
  Report Type: Spontaneous
  Country: US (occurrence: None)
  Receive Date: 20130529
  Receipt Date: 20130529
  Transmission Date: 20140414
  Serious: No
  Sender: FDA-Public Use
  Company Number: None

PATIENT
  Age: 64 Year
  Sex: Male
  Weight: 72.7 kg

DRUGS (1)
  1. ENALAPRILAT [Suspect]
     Indication: HYPERTENSION
     Dosage: MG
     Dates: start: 20130525, end: 20130527

REACTIONS (7)
  - Swelling face [None]
  - Neck pain [None]
  - Local swelling [None]
  - Lymphadenopathy [None]
  - Swelling [None]
  - Pharyngeal oedema [None]
  - Angioedema [None]
